FAERS Safety Report 5865094-5 (Version None)
Quarter: 2008Q3

REPORT INFORMATION
  Report Type: 
  Country: None (occurrence: None)
  Receive Date: 20080829
  Receipt Date: 20080821
  Transmission Date: 20090109
  Serious: Yes (Hospitalization)
  Sender: FDA-Public Use
  Company Number: A0742211A

PATIENT
  Age: 63 Year
  Sex: Female

DRUGS (3)
  1. AVANDIA [Suspect]
     Dosage: 2MG TWICE PER DAY
     Route: 048
     Dates: start: 20050101, end: 20080401
  2. ACTOS [Suspect]
  3. METFORMIN HCL [Concomitant]

REACTIONS (4)
  - DYSPNOEA [None]
  - HYPOAESTHESIA [None]
  - MUSCULAR WEAKNESS [None]
  - MYOCARDIAL INFARCTION [None]
